FAERS Safety Report 9870814 (Version 5)
Quarter: 2014Q2

REPORT INFORMATION
  Report Type: Report from Study
  Country: SE (occurrence: SE)
  Receive Date: 20140205
  Receipt Date: 20140515
  Transmission Date: 20141212
  Serious: Yes (Death, Other)
  Sender: FDA-Public Use
  Company Number: SE-CELGENEUS-150-20785-14014077

PATIENT
  Age: 73 Year
  Sex: Female

DRUGS (10)
  1. THALIDOMIDE [Suspect]
     Indication: PLASMA CELL MYELOMA
     Dosage: 50 MILLIGRAM
     Route: 048
     Dates: start: 20110628, end: 20130318
  2. MELPHALAN [Suspect]
     Indication: PLASMA CELL MYELOMA
     Dosage: 14 MILLIGRAM
     Route: 048
     Dates: start: 20110628, end: 20120220
  3. PREDNISONE [Suspect]
     Indication: PLASMA CELL MYELOMA
     Dosage: 150 MILLIGRAM
     Route: 048
     Dates: start: 20110628, end: 20120220
  4. OXYCONTIN [Concomitant]
     Indication: PAIN
     Route: 048
     Dates: start: 20131217, end: 20140417
  5. KALCIPOS-D [Concomitant]
     Indication: BONE DISORDER
     Route: 048
     Dates: start: 20131108, end: 20140417
  6. LAXATIVES [Concomitant]
     Indication: CONSTIPATION
     Dosage: 1 DOSAGE FORMS
     Route: 048
     Dates: start: 20111217, end: 20140417
  7. CILAXORAL [Concomitant]
     Indication: LAXATIVE SUPPORTIVE CARE
     Dosage: MG/ML
     Route: 048
     Dates: start: 20120704, end: 20140417
  8. FUROSEMIDE [Concomitant]
     Indication: DIURETIC THERAPY
     Route: 048
     Dates: start: 20130513, end: 20140417
  9. PAMIDRONATE [Concomitant]
     Indication: BONE DISORDER
     Route: 041
     Dates: start: 2011, end: 20131122
  10. PARACETAMOL [Concomitant]
     Indication: PAIN
     Route: 048
     Dates: start: 2011, end: 20140417

REACTIONS (1)
  - Acute myeloid leukaemia [Fatal]
